FAERS Safety Report 9878722 (Version 2)
Quarter: 2014Q1

REPORT INFORMATION
  Report Type: Spontaneous
  Country: US (occurrence: US)
  Receive Date: 20140206
  Receipt Date: 20140206
  Transmission Date: 20141002
  Serious: Yes (Other)
  Sender: FDA-Public Use
  Company Number: US-GLAXOSMITHKLINE-A0920709A

PATIENT
  Age: 12 Year
  Sex: Male

DRUGS (10)
  1. ADVAIR HFA [Suspect]
     Indication: ASTHMA
     Dosage: 2PUFF TWICE PER DAY
     Route: 055
     Dates: start: 2012
  2. ADVAIR HFA [Suspect]
     Indication: ASTHMA
     Dosage: 1PUFF TWICE PER DAY
     Route: 055
     Dates: start: 201006
  3. XOPENEX [Concomitant]
  4. ALBUTEROL NEBULIZER [Concomitant]
  5. RHINOCORT [Concomitant]
  6. IPRATROPIUM BROMIDE [Concomitant]
  7. ALLEGRA [Concomitant]
  8. COUGH MED WITH CODEINE [Concomitant]
  9. ALBUTEROL INHALER [Concomitant]
  10. FLUTICASONE [Concomitant]

REACTIONS (4)
  - Asthma [Unknown]
  - Drug ineffective [Unknown]
  - Asthma [Not Recovered/Not Resolved]
  - Cough [Not Recovered/Not Resolved]
